FAERS Safety Report 9345117 (Version 1)
Quarter: 2013Q2

REPORT INFORMATION
  Report Type: Spontaneous
  Country: IT (occurrence: IT)
  Receive Date: 20130612
  Receipt Date: 20130612
  Transmission Date: 20140414
  Serious: Yes (Other)
  Sender: FDA-Public Use
  Company Number: IT-BAXTER-2013BAX021193

PATIENT
  Age: 61 Year
  Sex: Female

DRUGS (1)
  1. ENDOXAN BAXTER [Suspect]
     Indication: BREAST CANCER RECURRENT
     Route: 048
     Dates: start: 20130121, end: 20130328

REACTIONS (1)
  - Ototoxicity [Recovering/Resolving]
